FAERS Safety Report 9516046 (Version 1)
Quarter: 2013Q3

REPORT INFORMATION
  Report Type: Spontaneous
  Country: DE (occurrence: None)
  Receive Date: 20130909
  Receipt Date: 20130909
  Transmission Date: 20140515
  Serious: Yes (Hospitalization, Other)
  Sender: FDA-Public Use
  Company Number: COR_00015_2013

PATIENT
  Age: 56 Year
  Sex: Female

DRUGS (3)
  1. CARBOPLATIN [Suspect]
     Indication: OVARIAN CANCER RECURRENT
     Dosage: ( [AREA UNDER THE CURVE OF 4] DF)
     Dates: start: 201108, end: 201202
  2. GEMCITABINE [Suspect]
     Indication: OVARIAN CANCER RECURRENT
     Dates: start: 201108, end: 201202
  3. BEVACIZUMAB [Suspect]
     Indication: OVARIAN CANCER RECURRENT
     Dosage: 15 MG/KG, ON DAY 1
     Dates: start: 201108, end: 201108

REACTIONS (9)
  - Respiratory distress [None]
  - Chest pain [None]
  - Ovarian cancer recurrent [None]
  - Metastases to liver [None]
  - Sepsis [None]
  - Pneumothorax [None]
  - Pleural effusion [None]
  - Gastric perforation [None]
  - Gastropleural fistula [None]
